FAERS Safety Report 21096531 (Version 1)
Quarter: 2022Q3

REPORT INFORMATION
  Report Type: Report from Study
  Country: US (occurrence: None)
  Receive Date: 20220718
  Receipt Date: 20220718
  Transmission Date: 20221026
  Serious: Yes (Hospitalization)
  Sender: FDA-Public Use
  Company Number: US-Eisai Medical Research-EC-2022-119073

PATIENT
  Age: 41 Year
  Sex: Male

DRUGS (3)
  1. LENVIMA [Suspect]
     Active Substance: LENVATINIB
     Indication: Renal cancer
     Route: 048
     Dates: start: 20211119, end: 2022
  2. LENVIMA [Suspect]
     Active Substance: LENVATINIB
     Indication: Metastases to lung
  3. EVEROLIMUS [Concomitant]
     Active Substance: EVEROLIMUS
     Indication: Product used for unknown indication

REACTIONS (2)
  - Weight decreased [Unknown]
  - Feeding disorder [Unknown]

NARRATIVE: CASE EVENT DATE: 20220101
